FAERS Safety Report 18550855 (Version 1)
Quarter: 2020Q4

REPORT INFORMATION
  Report Type: Spontaneous
  Country: FR (occurrence: FR)
  Receive Date: 20201126
  Receipt Date: 20201126
  Transmission Date: 20210114
  Serious: Yes (Hospitalization, Other)
  Sender: FDA-Public Use
  Company Number: FR-SA-2020SA334773

PATIENT

DRUGS (4)
  1. DEXAMBUTOL [Suspect]
     Active Substance: ETHAMBUTOL HYDROCHLORIDE
     Indication: ENCEPHALITIS
     Dosage: 2 DF, QD
     Route: 048
     Dates: start: 20201007
  2. RIFATER [Suspect]
     Active Substance: ISONIAZID\PYRAZINAMIDE\RIFAMPIN
     Indication: ENCEPHALITIS
     Dosage: 5 DF, 1X
     Route: 048
     Dates: start: 20201007
  3. AMBISOME [Suspect]
     Active Substance: AMPHOTERICIN B
     Indication: ENCEPHALITIS
     Dosage: 200 MG, QD
     Route: 042
     Dates: start: 20201007
  4. DOXYCYCLINE SANDOZ [DOXYCYCLINE] [Suspect]
     Active Substance: DOXYCYCLINE
     Indication: ENCEPHALITIS
     Dosage: 200 MG, QD
     Route: 048
     Dates: start: 20201007

REACTIONS (1)
  - Pancytopenia [Not Recovered/Not Resolved]

NARRATIVE: CASE EVENT DATE: 20201016
